FAERS Safety Report 9372934 (Version 3)
Quarter: 2014Q1

REPORT INFORMATION
  Report Type: Report from Study
  Country: DE (occurrence: DE)
  Receive Date: 20130627
  Receipt Date: 20140117
  Transmission Date: 20141002
  Serious: Yes (Hospitalization)
  Sender: FDA-Public Use
  Company Number: DE-JNJFOC-20130611349

PATIENT
  Age: 49 Year
  Sex: Male
  Weight: 42.64 kg

DRUGS (1)
  1. USTEKINUMAB [Suspect]
     Indication: PSORIATIC ARTHROPATHY
     Route: 058
     Dates: start: 20120221

REACTIONS (1)
  - Gastroenteritis [Recovered/Resolved]
